FAERS Safety Report 17656126 (Version 1)
Quarter: 2020Q2

REPORT INFORMATION
  Report Type: Spontaneous
  Country: US (occurrence: US)
  Receive Date: 20200410
  Receipt Date: 20200410
  Transmission Date: 20200713
  Serious: No
  Sender: FDA-Public Use
  Company Number: US-BAUSCH-BL-2020-007864

PATIENT
  Sex: Male

DRUGS (1)
  1. ALAWAY [Suspect]
     Active Substance: KETOTIFEN FUMARATE
     Indication: PRODUCT USED FOR UNKNOWN INDICATION
     Route: 065

REACTIONS (3)
  - Product residue present [Unknown]
  - Irritability [Unknown]
  - Feeling abnormal [Unknown]
